FAERS Safety Report 23122768 (Version 3)
Quarter: 2023Q4

REPORT INFORMATION
  Report Type: Report from Study
  Country: US (occurrence: US)
  Receive Date: 20231030
  Receipt Date: 20231214
  Transmission Date: 20240110
  Serious: Yes (Other)
  Sender: FDA-Public Use
  Company Number: US-002147023-NVSC2023US228808

PATIENT
  Age: 20 Year
  Sex: Female

DRUGS (3)
  1. KESIMPTA [Suspect]
     Active Substance: OFATUMUMAB
     Indication: Product used for unknown indication
     Dosage: UNK
     Route: 065
  2. VITAMIN D3 [Concomitant]
     Active Substance: CHOLECALCIFEROL
     Indication: Product used for unknown indication
     Dosage: 50 MCG/ML, QD
     Route: 048
     Dates: start: 20220818
  3. VIENVA TM [Concomitant]
     Active Substance: ETHINYL ESTRADIOL\LEVONORGESTREL
     Indication: Product used for unknown indication
     Dosage: 0.1 MCG/ML, QD
     Route: 048
     Dates: start: 20230818

REACTIONS (15)
  - Multiple sclerosis [Unknown]
  - Spinal fracture [Unknown]
  - Device malfunction [Unknown]
  - Accidental exposure to product [Unknown]
  - Drug dose omission by device [Unknown]
  - Vision blurred [Unknown]
  - Pollakiuria [Unknown]
  - Muscular weakness [Unknown]
  - Balance disorder [Unknown]
  - Hypoaesthesia [Unknown]
  - Amnesia [Unknown]
  - Thinking abnormal [Unknown]
  - Back pain [Unknown]
  - COVID-19 [Unknown]
  - Concussion [Unknown]

NARRATIVE: CASE EVENT DATE: 20220801
